FAERS Safety Report 13549564 (Version 1)
Quarter: 2017Q2

REPORT INFORMATION
  Report Type: Report from Study
  Country: GB (occurrence: GB)
  Receive Date: 20170516
  Receipt Date: 20170516
  Transmission Date: 20170830
  Serious: Yes (Other)
  Sender: FDA-Public Use
  Company Number: PHHY2017GB052539

PATIENT
  Age: 21 Year
  Sex: Female

DRUGS (1)
  1. GILENYA [Suspect]
     Active Substance: FINGOLIMOD HYDROCHLORIDE
     Indication: MULTIPLE SCLEROSIS
     Dosage: UNK, QD
     Route: 048
     Dates: start: 20140611

REACTIONS (13)
  - Seizure [Unknown]
  - Nausea [Recovered/Resolved]
  - Vomiting [Recovered/Resolved]
  - Optic nerve cupping [Unknown]
  - Viral upper respiratory tract infection [Recovered/Resolved]
  - Cough [Unknown]
  - Gamma-glutamyltransferase increased [Unknown]
  - Depressed mood [Unknown]
  - Decreased appetite [Unknown]
  - Headache [Unknown]
  - Asthma [Unknown]
  - Oral herpes [Unknown]
  - Blood alkaline phosphatase increased [Unknown]

NARRATIVE: CASE EVENT DATE: 20150129
